FAERS Safety Report 9416750 (Version 1)
Quarter: 2013Q3

REPORT INFORMATION
  Report Type: Spontaneous
  Country: US (occurrence: US)
  Receive Date: 20130724
  Receipt Date: 20130724
  Transmission Date: 20140515
  Serious: No
  Sender: FDA-Public Use
  Company Number: US-GALDERMA-US-GDP-12415055

PATIENT
  Age: 24 Year
  Sex: Female
  Weight: 58 kg

DRUGS (3)
  1. ORACEA (DOXYCYCLINE, USP) CAPSULES 40 MG [Suspect]
     Indication: ACNE
     Route: 048
     Dates: start: 20120911, end: 20120912
  2. ORTHO CYCLEN [Concomitant]
     Route: 048
     Dates: start: 201206
  3. ZIANA [Concomitant]
     Indication: CONTRACEPTION
     Route: 061
     Dates: start: 201208

REACTIONS (5)
  - Paraesthesia oral [Recovered/Resolved]
  - Tongue discolouration [Recovered/Resolved]
  - Tooth discolouration [Recovered/Resolved]
  - Lip discolouration [Recovered/Resolved]
  - Off label use [Recovered/Resolved]
